FAERS Safety Report 14316600 (Version 1)
Quarter: 2017Q4

REPORT INFORMATION
  Report Type: Spontaneous
  Country: MG (occurrence: MG)
  Receive Date: 20171222
  Receipt Date: 20171222
  Transmission Date: 20180321
  Serious: Yes (Disabling)
  Sender: FDA-Public Use
  Company Number: MG-ABBVIE-17P-099-2202116-00

PATIENT
  Age: 6 Year
  Sex: Male

DRUGS (1)
  1. DEPAKINE [Suspect]
     Active Substance: VALPROATE SODIUM
     Indication: EPILEPSY
     Route: 048

REACTIONS (5)
  - Speech disorder [Unknown]
  - Condition aggravated [Unknown]
  - Psychomotor hyperactivity [Unknown]
  - Strabismus [Unknown]
  - Visual impairment [Unknown]
